FAERS Safety Report 8311735-2 (Version None)
Quarter: 2012Q2

REPORT INFORMATION
  Report Type: 
  Country: None (occurrence: None)
  Receive Date: 20120425
  Receipt Date: 20120420
  Transmission Date: 20120825
  Serious: No
  Sender: FDA-Public Use
  Company Number: US-ROXANE LABORATORIES, INC.-2012-RO-01096RO

PATIENT
  Sex: Female

DRUGS (6)
  1. DIOVAN [Concomitant]
     Indication: HYPERTENSION
  2. CHOLESTYRAMINE [Concomitant]
  3. ASPIRIN [Concomitant]
     Dosage: 81 MG
  4. BALSALAZIDE DISODIUM [Suspect]
     Indication: COLITIS ULCERATIVE
     Dosage: 6750 MG
     Route: 048
     Dates: start: 20110901
  5. SIMVASTATIN [Concomitant]
     Indication: BLOOD CHOLESTEROL INCREASED
  6. SLEEPING PILL [Concomitant]
     Indication: SLEEP DISORDER

REACTIONS (1)
  - RHINORRHOEA [None]
